FAERS Safety Report 7688929-2 (Version None)
Quarter: 2011Q3

REPORT INFORMATION
  Report Type: 
  Country: None (occurrence: None)
  Receive Date: 20110817
  Receipt Date: 20110809
  Transmission Date: 20111222
  Serious: Yes (Other)
  Sender: FDA-Public Use
  Company Number: PHHY2011IT70522

PATIENT
  Sex: Male

DRUGS (3)
  1. ZOMETA [Suspect]
     Indication: METASTASES TO BONE
     Dosage: 4 MG CYCLICALLY
     Dates: start: 20100518, end: 20110505
  2. ELIGARD [Concomitant]
  3. EULEXIN [Concomitant]
     Dosage: 750 MG, UNK

REACTIONS (1)
  - OSTEONECROSIS OF JAW [None]
